FAERS Safety Report 9161383 (Version 1)
Quarter: 2012Q4

REPORT INFORMATION
  Report Type: 
  Country: US (occurrence: US)
  Receive Date: 20121227
  Receipt Date: 20121227
  Transmission Date: 20130627
  Serious: Yes (Hospitalization)
  Sender: FDA-Public Use
  Company Number: US-RB-048103-12

PATIENT
  Age: 45 Year
  Sex: Female

DRUGS (2)
  1. SUBOXONE FILM [Suspect]
     Indication: PAIN
     Dosage: Sublingual film; Unknown dosing details
     Route: 060
     Dates: start: 201207, end: 201212
  2. NUCYNTA [Concomitant]
     Indication: PAIN
     Dosage: Unknown dosing details
     Route: 065
     Dates: start: 201212, end: 20121218

REACTIONS (3)
  - Breast mass [Recovered/Resolved]
  - Off label use [Recovered/Resolved]
  - Diarrhoea [Not Recovered/Not Resolved]
